FAERS Safety Report 7021012-8 (Version None)
Quarter: 2010Q3

REPORT INFORMATION
  Report Type: 
  Country: None (occurrence: None)
  Receive Date: 20100929
  Receipt Date: 20100924
  Transmission Date: 20110219
  Serious: Yes (Other)
  Sender: FDA-Public Use
  Company Number: US-PFIZER INC-2010121777

PATIENT
  Sex: Female
  Weight: 110 kg

DRUGS (5)
  1. QUINAPRIL HCL [Suspect]
     Indication: HYPERTENSION
     Dosage: 20 MG, UNK
  2. QUINAPRIL HCL [Suspect]
     Dosage: 40 MG, UNK
  3. QUINAPRIL HCL [Suspect]
     Dosage: 80 MG, UNK
  4. ACIPHEX [Concomitant]
     Indication: GASTROOESOPHAGEAL REFLUX DISEASE
     Dosage: 20 MG, ALTERNATE DAY
     Route: 048
  5. CYMBALTA [Concomitant]
     Indication: DEPRESSION
     Dosage: 60 MG, UNK
     Route: 048

REACTIONS (4)
  - CIRCUMSTANCE OR INFORMATION CAPABLE OF LEADING TO MEDICATION ERROR [None]
  - FALL [None]
  - UPPER LIMB FRACTURE [None]
  - WEIGHT INCREASED [None]
